FAERS Safety Report 6637809-X (Version None)
Quarter: 2010Q1

REPORT INFORMATION
  Report Type: 
  Country: None (occurrence: None)
  Receive Date: 20100312
  Receipt Date: 20100304
  Transmission Date: 20100710
  Serious: Yes (Other)
  Sender: FDA-Public Use
  Company Number: DSA_42730_2010

PATIENT
  Age: 89 Year
  Sex: Female

DRUGS (2)
  1. XENAZINE [Suspect]
     Indication: CHOREA
     Dosage: 150 MG TOTAL DAILY DOSE ORAL 25 MG QID ORAL
     Route: 048
     Dates: start: 20040101
  2. BACTRIM [Suspect]
     Indication: URINARY TRACT INFECTION
     Dosage: DF

REACTIONS (4)
  - ABNORMAL BEHAVIOUR [None]
  - AGITATION [None]
  - CONFUSIONAL STATE [None]
  - HALLUCINATION, VISUAL [None]
